FAERS Safety Report 4900336-1 (Version None)
Quarter: 2006Q1

REPORT INFORMATION
  Report Type: 
  Country: None (occurrence: None)
  Receive Date: 20060203
  Receipt Date: 20051226
  Transmission Date: 20060701
  Serious: Yes (Hospitalization)
  Sender: FDA-Public Use
  Company Number: JP-JPN-A20053198

PATIENT
  Age: 74 Year
  Sex: Female

DRUGS (4)
  1. MODACIN [Suspect]
     Indication: PANCREATITIS
     Dosage: 1G TWICE PER DAY
     Route: 042
     Dates: start: 20051107, end: 20051110
  2. MODACIN [Suspect]
     Dosage: 1G TWICE PER DAY
     Route: 042
     Dates: start: 20051114, end: 20051119
  3. REMINARON [Concomitant]
     Indication: PANCREATITIS
     Dosage: 400MG THREE TIMES PER DAY
     Route: 042
     Dates: start: 20051114, end: 20051119
  4. GASTER [Concomitant]
     Indication: PANCREATITIS
     Dosage: 1U TWICE PER DAY
     Route: 042
     Dates: start: 20051114, end: 20051119

REACTIONS (2)
  - EOSINOPHIL COUNT INCREASED [None]
  - HEPATIC FUNCTION ABNORMAL [None]
